FAERS Safety Report 7277322-2 (Version None)
Quarter: 2010Q4

REPORT INFORMATION
  Report Type: 
  Country: None (occurrence: None)
  Receive Date: 20101201
  Receipt Date: 20100818
  Transmission Date: 20110411
  Serious: Yes (Other)
  Sender: FDA-Public Use
  Company Number: 313401

PATIENT
  Age: 57 Year
  Sex: Female

DRUGS (2)
  1. NOVOLOG [Suspect]
     Indication: TYPE 2 DIABETES MELLITUS
     Dosage: 50 U, SUBCUTANEOUS
     Route: 058
  2. LEVEMIR [Suspect]
     Indication: TYPE 2 DIABETES MELLITUS
     Dosage: SUBCUTANEOUS
     Route: 058

REACTIONS (5)
  - BLINDNESS [None]
  - HYPOGLYCAEMIC SEIZURE [None]
  - MUSCLE SPASMS [None]
  - POLLAKIURIA [None]
  - WRONG DRUG ADMINISTERED [None]
